FAERS Safety Report 19997560 (Version 4)
Quarter: 2022Q1

REPORT INFORMATION
  Report Type: Spontaneous
  Country: US (occurrence: US)
  Receive Date: 20211026
  Receipt Date: 20220218
  Transmission Date: 20220423
  Serious: Yes (Death)
  Sender: FDA-Public Use
  Company Number: US-ABBVIE-21K-163-4135886-00

PATIENT
  Age: 90 Year
  Sex: Male
  Weight: 63.1 kg

DRUGS (1)
  1. IMBRUVICA [Suspect]
     Active Substance: IBRUTINIB
     Indication: Chronic lymphocytic leukaemia
     Route: 048
     Dates: start: 20150310, end: 20211019

REACTIONS (1)
  - Death [Fatal]

NARRATIVE: CASE EVENT DATE: 20211019
